FAERS Safety Report 18022987 (Version 1)
Quarter: 2020Q3

REPORT INFORMATION
  Report Type: Spontaneous
  Country: CA (occurrence: CA)
  Receive Date: 20200714
  Receipt Date: 20200714
  Transmission Date: 20201103
  Serious: Yes (Death)
  Sender: FDA-Public Use
  Company Number: CA-FRESENIUS KABI-FK202007162

PATIENT
  Age: 90 Year
  Sex: Female

DRUGS (1)
  1. AMIODARONE HCL (MANUFACTURER UNKNOWN) [Suspect]
     Active Substance: AMIODARONE HYDROCHLORIDE
     Indication: ARRHYTHMIA
     Route: 065

REACTIONS (5)
  - Cough [Fatal]
  - Pulmonary toxicity [Fatal]
  - Haemoptysis [Fatal]
  - Oxygen saturation abnormal [Fatal]
  - Pneumonia [Fatal]
